FAERS Safety Report 9994943 (Version 3)
Quarter: 2015Q2

REPORT INFORMATION
  Report Type: Spontaneous
  Country: US (occurrence: US)
  Receive Date: 20140311
  Receipt Date: 20150619
  Transmission Date: 20150821
  Serious: Yes (Hospitalization)
  Sender: FDA-Public Use
  Company Number: US-BAYER-2014-036101

PATIENT
  Age: 28 Year
  Sex: Female
  Weight: 81.63 kg

DRUGS (1)
  1. YASMIN [Suspect]
     Active Substance: DROSPIRENONE\ETHINYL ESTRADIOL
     Indication: PREMENSTRUAL SYNDROME
     Dosage: UNK
     Dates: start: 200101, end: 200201

REACTIONS (8)
  - Pain [None]
  - Injury [None]
  - Off label use [None]
  - Hypoaesthesia [None]
  - Cerebral thrombosis [None]
  - General physical health deterioration [None]
  - Cerebrovascular accident [None]
  - Abdominal pain [None]

NARRATIVE: CASE EVENT DATE: 200201
